FAERS Safety Report 11257911 (Version 2)
Quarter: 2015Q3

REPORT INFORMATION
  Report Type: Spontaneous
  Country: US (occurrence: US)
  Receive Date: 20150710
  Receipt Date: 20150810
  Transmission Date: 20151125
  Serious: Yes (Other)
  Sender: FDA-Public Use
  Company Number: US-ROCHE-ITM201504IM013520

PATIENT
  Sex: Female
  Weight: 84.44 kg

DRUGS (1)
  1. ESBRIET [Suspect]
     Active Substance: PIRFENIDONE
     Indication: IDIOPATHIC PULMONARY FIBROSIS
     Dosage: 3 CAPS PO TID, TOTAL- 2403 MG DAILY
     Route: 048
     Dates: start: 20150122

REACTIONS (4)
  - Pulmonary arterial hypertension [Unknown]
  - Malaise [Unknown]
  - Pneumonia [Not Recovered/Not Resolved]
  - Inflammation [Unknown]
